FAERS Safety Report 5179434-6 (Version None)
Quarter: 2006Q4

REPORT INFORMATION
  Report Type: 
  Country: None (occurrence: None)
  Receive Date: 20061211
  Receipt Date: 20061121
  Transmission Date: 20070319
  Serious: Yes (Hospitalization, Other)
  Sender: FDA-Public Use
  Company Number: WAES 0611USA06291

PATIENT
  Age: 59 Year
  Sex: Male
  Weight: 64.8644 kg

DRUGS (10)
  1. DECADRON [Suspect]
     Dosage: UNK/UNK/PO
     Route: 048
  2. IBUPROFEN [Suspect]
     Indication: PAIN
     Dosage: UNK/UNK/UNK
     Dates: end: 20050101
  3. ADVAIR DISKUS 100/50 [Concomitant]
  4. TAXOTERE [Concomitant]
  5. ZOMETA [Concomitant]
  6. ALBUTEROL [Concomitant]
  7. CARBOPLATIN [Concomitant]
  8. MORPHINE SULFATE [Concomitant]
  9. OXYGEN [Concomitant]
  10. PLACEBO (UNSPECIFIED) [Concomitant]

REACTIONS (20)
  - ABDOMINAL PAIN UPPER [None]
  - BACK PAIN [None]
  - BRONCHITIS [None]
  - CHEST X-RAY ABNORMAL [None]
  - CHRONIC OBSTRUCTIVE PULMONARY DISEASE [None]
  - COSTOVERTEBRAL ANGLE TENDERNESS [None]
  - DECREASED APPETITE [None]
  - DYSPEPSIA [None]
  - GASTRITIS [None]
  - INSOMNIA [None]
  - IRON DEFICIENCY ANAEMIA [None]
  - LUNG NEOPLASM [None]
  - MALIGNANT NEOPLASM PROGRESSION [None]
  - METASTASES TO CENTRAL NERVOUS SYSTEM [None]
  - MUSCULOSKELETAL PAIN [None]
  - NAUSEA [None]
  - PHARYNGOLARYNGEAL PAIN [None]
  - PNEUMONIA [None]
  - RHINITIS [None]
  - WEIGHT DECREASED [None]
